FAERS Safety Report 19966705 (Version 1)
Quarter: 2021Q4

REPORT INFORMATION
  Report Type: Other
  Country: CN (occurrence: CN)
  Receive Date: 20211019
  Receipt Date: 20211019
  Transmission Date: 20220303
  Serious: Yes (Hospitalization)
  Sender: FDA-Public Use
  Company Number: CN-AJANTA PHARMA USA INC.-2120716

PATIENT
  Age: 21 Year
  Sex: Female

DRUGS (2)
  1. RISPERIDONE [Suspect]
     Active Substance: RISPERIDONE
     Indication: Schizophrenia
     Route: 048
  2. OLANZAPINE [Concomitant]
     Active Substance: OLANZAPINE

REACTIONS (1)
  - Plasma cell mastitis [Recovered/Resolved]
